FAERS Safety Report 14780862 (Version 1)
Quarter: 2018Q2

REPORT INFORMATION
  Report Type: Spontaneous
  Country: CH (occurrence: CH)
  Receive Date: 20180419
  Receipt Date: 20180419
  Transmission Date: 20180711
  Serious: Yes (Hospitalization)
  Sender: FDA-Public Use
  Company Number: CH-TEVA-2018-CH-882404

PATIENT
  Age: 42 Year
  Sex: Female

DRUGS (3)
  1. ENDOXAN [Suspect]
     Active Substance: CYCLOPHOSPHAMIDE
     Route: 041
     Dates: start: 20180222, end: 20180222
  2. EPIRUBICIN TEVA [Suspect]
     Active Substance: EPIRUBICIN
     Route: 065
     Dates: start: 20180222, end: 20180222
  3. ONDANSETRON LABATEC [Suspect]
     Active Substance: ONDANSETRON
     Route: 065
     Dates: start: 20180314, end: 20180314

REACTIONS (2)
  - Headache [Recovered/Resolved]
  - Tinnitus [Recovered/Resolved]

NARRATIVE: CASE EVENT DATE: 20180222
